FAERS Safety Report 18130929 (Version 1)
Quarter: 2020Q3

REPORT INFORMATION
  Report Type: Spontaneous
  Country: IN (occurrence: IN)
  Receive Date: 20200810
  Receipt Date: 20200810
  Transmission Date: 20201103
  Serious: Yes (Other)
  Sender: FDA-Public Use
  Company Number: IN-PFIZER INC-2020160879

PATIENT
  Age: 63 Year
  Sex: Male

DRUGS (1)
  1. SUTENT [Suspect]
     Active Substance: SUNITINIB MALATE
     Indication: RENAL CANCER METASTATIC
     Dosage: 12.5 MG, 1X/DAY
     Route: 048

REACTIONS (8)
  - Benign prostatic hyperplasia [Unknown]
  - Rash [Unknown]
  - Splenomegaly [Unknown]
  - Hypersplenism [Unknown]
  - Hypertension [Unknown]
  - Dyspepsia [Unknown]
  - Pyoderma [Unknown]
  - Constipation [Unknown]
